FAERS Safety Report 5176258-0 (Version None)
Quarter: 2006Q4

REPORT INFORMATION
  Report Type: 
  Country: None (occurrence: None)
  Receive Date: 20061129
  Receipt Date: 20061115
  Transmission Date: 20070319
  Serious: Yes (Other)
  Sender: FDA-Public Use
  Company Number: 200410460BBE

PATIENT
  Sex: Female

DRUGS (3)
  1. HYPRHO-D [Suspect]
     Indication: PREGNANCY
  2. INJECTABLE GLOBULIN (JOHNSON + JOHNSON)(IMMUNOGLOBULIN HUMAN NORMAL) [Suspect]
  3. INJECTABLE GLOBULIN (ORTHOCLINICAL DIAGNOSTIC) (IMMUNOGLOBULIN HUMAN N [Concomitant]

REACTIONS (1)
  - ADVERSE EVENT [None]
